FAERS Safety Report 5967877-X (Version None)
Quarter: 2008Q4

REPORT INFORMATION
  Report Type: 
  Country: None (occurrence: None)
  Receive Date: 20081126
  Receipt Date: 20081119
  Transmission Date: 20090506
  Serious: Yes (Hospitalization)
  Sender: FDA-Public Use
  Company Number: US-BIOGENIDEC-2008BI026433

PATIENT
  Age: 35 Year
  Sex: Female
  Weight: 57 kg

DRUGS (1)
  1. TYSABRI [Suspect]
     Indication: MULTIPLE SCLEROSIS
     Route: 042
     Dates: start: 20080318

REACTIONS (6)
  - BACTERIAL SEPSIS [None]
  - DEHYDRATION [None]
  - GAIT DISTURBANCE [None]
  - HYPOAESTHESIA [None]
  - POST LUMBAR PUNCTURE SYNDROME [None]
  - PYELONEPHRITIS [None]
